FAERS Safety Report 23235446 (Version 1)
Quarter: 2023Q4

REPORT INFORMATION
  Report Type: Spontaneous
  Country: US (occurrence: None)
  Receive Date: 20231127
  Receipt Date: 20231127
  Transmission Date: 20240110
  Serious: Yes (Death)
  Sender: FDA-Public Use
  Company Number: None

PATIENT
  Age: 58 Year
  Sex: Male

DRUGS (1)
  1. SPRAVATO [Suspect]
     Active Substance: ESKETAMINE
     Indication: Major depression
     Dosage: OTHER FREQUENCY : EVERY 2 WEEKS;?
     Route: 045
     Dates: start: 20220208, end: 20231122

REACTIONS (1)
  - Completed suicide [None]

NARRATIVE: CASE EVENT DATE: 20231122
